FAERS Safety Report 6289517 (Version 14)
Quarter: 2014Q2

REPORT INFORMATION
  Report Type: Spontaneous
  Country: US (occurrence: US)
  Receive Date: 20070417
  Receipt Date: 20140506
  Transmission Date: 20141212
  Serious: Yes (Other)
  Sender: FDA-Public Use
  Company Number: PHEH2007US04447

PATIENT
  Sex: Female

DRUGS (40)
  1. AREDIA [Suspect]
     Indication: BONE CANCER
     Dosage: 90 MG, QMO
     Route: 041
     Dates: end: 20030303
  2. AREDIA [Suspect]
     Indication: PLASMA CELL MYELOMA
  3. ZOMETA [Suspect]
     Route: 042
  4. IRON [Concomitant]
  5. CLINDA [Concomitant]
  6. CEFALEXIN [Concomitant]
  7. ZITHROMAX ^HEINRICH MACK^ [Concomitant]
  8. TORADOL [Concomitant]
  9. IBUPROFEN [Concomitant]
  10. FLEXERIL [Concomitant]
  11. LIPITOR                                 /NET/ [Concomitant]
  12. DECADRON                                /CAN/ [Concomitant]
  13. ZOCOR ^DIECKMANN^ [Concomitant]
  14. MELPHALAN [Concomitant]
  15. PREDNISONE [Concomitant]
  16. ATENOLOL [Concomitant]
  17. ZETIA [Concomitant]
  18. METOPROLOL [Concomitant]
  19. VELCADE [Concomitant]
  20. PROCRIT                            /00909301/ [Concomitant]
  21. NEUPOGEN [Concomitant]
  22. CHEMOTHERAPEUTICS NOS [Concomitant]
  23. THALIDOMIDE [Concomitant]
  24. FENTANYL [Concomitant]
  25. NEURONTIN [Concomitant]
  26. LOPRESSOR [Concomitant]
  27. LEVAQUIN [Concomitant]
  28. ZOVIRAX [Concomitant]
  29. DIFLUCAN [Concomitant]
  30. PEPCID [Concomitant]
  31. PROVERA [Concomitant]
  32. HEPARIN [Concomitant]
  33. BENADRYL ^ACHE^ [Concomitant]
  34. COMPAZINE [Concomitant]
  35. MEDROL [Concomitant]
  36. ZOFRAN [Concomitant]
  37. NORCO [Concomitant]
  38. TYLENOL [Concomitant]
  39. AMBIEN [Concomitant]
  40. HEMOCYTE PLUS [Concomitant]

REACTIONS (43)
  - Arteriosclerosis [Unknown]
  - Pancytopenia [Unknown]
  - Osteonecrosis of jaw [Unknown]
  - Bone disorder [Unknown]
  - Swelling [Unknown]
  - Infection [Unknown]
  - Deformity [Unknown]
  - Hypophagia [Unknown]
  - Emotional distress [Unknown]
  - Anxiety [Unknown]
  - Pain [Unknown]
  - Osteomyelitis [Unknown]
  - Actinomycosis [Unknown]
  - Skin lesion [Unknown]
  - Gingival pain [Unknown]
  - Gingival bleeding [Unknown]
  - Tooth abscess [Unknown]
  - Mucosal inflammation [Unknown]
  - Hypoaesthesia [Unknown]
  - Sciatica [Unknown]
  - Intervertebral disc protrusion [Unknown]
  - Seborrhoeic keratosis [Unknown]
  - Osteoarthritis [Unknown]
  - Neuropathy peripheral [Unknown]
  - Basal cell carcinoma [Unknown]
  - Second primary malignancy [Unknown]
  - Lumbar vertebral fracture [Unknown]
  - Bone lesion [Unknown]
  - Patella fracture [Unknown]
  - Mononeuritis [Unknown]
  - Malignant lymphoid neoplasm [Unknown]
  - Fall [Unknown]
  - Intervertebral disc compression [Unknown]
  - Hypertrophy [Unknown]
  - Leukopenia [Unknown]
  - Osteosclerosis [Unknown]
  - Spinal column stenosis [Unknown]
  - Gastroenteritis viral [Unknown]
  - Hypothyroidism [Unknown]
  - Vitamin D deficiency [Unknown]
  - Upper respiratory tract infection [Unknown]
  - Spinal osteoarthritis [Unknown]
  - Neutropenia [Unknown]
